FAERS Safety Report 7605720-3 (Version None)
Quarter: 2011Q3

REPORT INFORMATION
  Report Type: 
  Country: None (occurrence: None)
  Receive Date: 20110713
  Receipt Date: 20110706
  Transmission Date: 20111222
  Serious: Yes (Other)
  Sender: FDA-Public Use
  Company Number: JO-PFIZER INC-2011152433

PATIENT
  Age: 23 Year
  Sex: Male

DRUGS (6)
  1. PREDNISOLONE [Concomitant]
     Indication: IMMUNOSUPPRESSION
     Dosage: 10 MG, 1X/DAY
     Route: 048
     Dates: start: 20100101
  2. ALFACALCIDOL [Concomitant]
     Dosage: 1.25 MG, 1X/DAY
     Dates: start: 20100101
  3. RAPAMUNE [Suspect]
     Dosage: 2 MG ONCE DAILY
     Route: 048
     Dates: start: 20110704
  4. RAPAMUNE [Suspect]
     Indication: RENAL TRANSPLANT
     Dosage: UNK
     Route: 048
     Dates: end: 20110601
  5. MYFORTIC [Concomitant]
     Indication: IMMUNOSUPPRESSION
     Dosage: 360 MG, 2X/DAY
     Route: 048
     Dates: start: 20100101
  6. ATENOLOL [Concomitant]
     Indication: HYPERTENSION
     Dosage: 50 MG, UNK
     Route: 048
     Dates: start: 20100101

REACTIONS (2)
  - URETERIC OBSTRUCTION [None]
  - MEDICATION RESIDUE [None]
